FAERS Safety Report 4453994-2 (Version None)
Quarter: 2004Q3

REPORT INFORMATION
  Report Type: 
  Country: None (occurrence: None)
  Receive Date: 20040826
  Receipt Date: 20040628
  Transmission Date: 20050211
  Serious: No
  Sender: FDA-Public Use
  Company Number: WAES 0403USA02610

PATIENT
  Age: 67 Year
  Sex: Male
  Weight: 100.2449 kg

DRUGS (2)
  1. ZETIA [Suspect]
     Indication: LOW DENSITY LIPOPROTEIN INCREASED
     Dosage: 10 MG/DAILY/PO
     Route: 048
     Dates: start: 20040214, end: 20040222
  2. NIACIN [Concomitant]

REACTIONS (6)
  - ABDOMINAL DISCOMFORT [None]
  - DIZZINESS [None]
  - DYSPEPSIA [None]
  - HEART RATE INCREASED [None]
  - NAUSEA [None]
  - PAIN [None]
